FAERS Safety Report 5648366-9 (Version None)
Quarter: 2008Q1

REPORT INFORMATION
  Report Type: 
  Country: None (occurrence: None)
  Receive Date: 20080131
  Receipt Date: 20071220
  Transmission Date: 20080703
  Serious: No
  Sender: FDA-Public Use
  Company Number: 2006PV010083

PATIENT
  Age: 69 Year
  Sex: Female
  Weight: 98.9 kg

DRUGS (5)
  1. EXENATIDE(EXENATIDE) PEN,DISPOSABLE [Suspect]
     Indication: TYPE 2 DIABETES MELLITUS
     Dosage: 5 UG, 2/D, SUBCUTANEOUS ; 5 UG, 2/D, SUBCUTANEOUS
     Route: 058
     Dates: start: 20060211
  2. EXENATIDE(EXENATIDE) PEN,DISPOSABLE [Suspect]
  3. LANTUS [Concomitant]
  4. PRANDIN [Concomitant]
  5. METFORMIN HCL [Concomitant]

REACTIONS (5)
  - ANOREXIA [None]
  - CONSTIPATION [None]
  - DRUG INEFFECTIVE [None]
  - HOT FLUSH [None]
  - WEIGHT DECREASED [None]
